FAERS Safety Report 5530636-6 (Version None)
Quarter: 2007Q4

REPORT INFORMATION
  Report Type: 
  Country: None (occurrence: None)
  Receive Date: 20071130
  Receipt Date: 20071121
  Transmission Date: 20080405
  Serious: Yes (Other)
  Sender: FDA-Public Use
  Company Number: B0490158A

PATIENT
  Age: 56 Year
  Sex: Female
  Weight: 60 kg

DRUGS (2)
  1. TYKERB [Suspect]
     Dosage: 1250MG PER DAY
     Route: 048
     Dates: start: 20070704
  2. CAPECITABINE [Suspect]
     Dosage: 2650MG PER DAY
     Route: 048
     Dates: start: 20070704

REACTIONS (1)
  - PARONYCHIA [None]
